FAERS Safety Report 17353242 (Version 5)
Quarter: 2022Q2

REPORT INFORMATION
  Report Type: Other
  Country: JP (occurrence: JP)
  Receive Date: 20200131
  Receipt Date: 20220406
  Transmission Date: 20220721
  Serious: Yes (Hospitalization)
  Sender: FDA-Public Use
  Company Number: JP-CHUGAI-A2018037198ROCHE

PATIENT
  Age: 67 Year
  Sex: Male
  Weight: 60 kg

DRUGS (24)
  1. EMICIZUMAB [Suspect]
     Active Substance: EMICIZUMAB
     Indication: Haemophilia A with anti factor VIII
     Route: 058
     Dates: start: 20180608, end: 20180629
  2. EMICIZUMAB [Suspect]
     Active Substance: EMICIZUMAB
     Route: 058
     Dates: start: 20180706, end: 20190112
  3. EMICIZUMAB [Suspect]
     Active Substance: EMICIZUMAB
     Route: 058
     Dates: start: 20190118
  4. EPTACOG ALFA [Concomitant]
     Active Substance: COAGULATION FACTOR VIIA RECOMBINANT HUMAN
     Dosage: 5 MILLIGRAM
     Route: 065
     Dates: start: 20201013, end: 20201013
  5. EPTACOG ALFA [Concomitant]
     Active Substance: COAGULATION FACTOR VIIA RECOMBINANT HUMAN
     Dosage: 5 MILLIGRAM
     Route: 065
     Dates: start: 20200127, end: 20200211
  6. EPTACOG ALFA [Concomitant]
     Active Substance: COAGULATION FACTOR VIIA RECOMBINANT HUMAN
     Dosage: 5 MILLIGRAM, QID
     Route: 065
     Dates: start: 20201016, end: 20201016
  7. EPTACOG ALFA [Concomitant]
     Active Substance: COAGULATION FACTOR VIIA RECOMBINANT HUMAN
     Dosage: 5 MILLIGRAM, 6 TIMES A DAY
     Route: 065
     Dates: start: 20201017, end: 20201017
  8. EPTACOG ALFA [Concomitant]
     Active Substance: COAGULATION FACTOR VIIA RECOMBINANT HUMAN
     Dosage: 5 MILLIGRAM, 6 TIMES A DAY
     Route: 065
     Dates: start: 20201018, end: 20201018
  9. EPTACOG ALFA [Concomitant]
     Active Substance: COAGULATION FACTOR VIIA RECOMBINANT HUMAN
     Dosage: 5 MILLIGRAM, TID
     Route: 065
     Dates: start: 20201019, end: 20201019
  10. ADONA [Concomitant]
     Dosage: 100 MILLIGRAM, QD
     Route: 042
     Dates: start: 20190531, end: 20190604
  11. ADONA [Concomitant]
     Dosage: 100 MILLIGRAM, QD
     Route: 042
     Dates: start: 20200112, end: 20200211
  12. ADONA [Concomitant]
     Dosage: 100 MILLIGRAM, QD
     Route: 042
     Dates: start: 20200929, end: 20201008
  13. NOVOSEVEN [Concomitant]
     Active Substance: COAGULATION FACTOR VIIA RECOMBINANT HUMAN
     Dosage: 1 DOSAGE FORM, QID
     Route: 041
     Dates: start: 20201016, end: 20201016
  14. NOVOSEVEN [Concomitant]
     Active Substance: COAGULATION FACTOR VIIA RECOMBINANT HUMAN
     Dosage: 1 DOSAGE FORM
     Route: 041
     Dates: start: 20201017, end: 20201017
  15. NOVOSEVEN [Concomitant]
     Active Substance: COAGULATION FACTOR VIIA RECOMBINANT HUMAN
     Dosage: 1 DOSAGE FORM
     Route: 041
     Dates: start: 20201018, end: 20201018
  16. NOVOSEVEN [Concomitant]
     Active Substance: COAGULATION FACTOR VIIA RECOMBINANT HUMAN
     Dosage: 1 DOSAGE FORM, TID
     Route: 041
     Dates: start: 20201019, end: 20201019
  17. NOVOSEVEN [Concomitant]
     Active Substance: COAGULATION FACTOR VIIA RECOMBINANT HUMAN
     Dosage: 1 DOSAGE FORM, QD
     Route: 041
     Dates: start: 20200127, end: 20200130
  18. NOVOSEVEN [Concomitant]
     Active Substance: COAGULATION FACTOR VIIA RECOMBINANT HUMAN
     Dosage: 1 DOSAGE FORM, BID
     Route: 041
     Dates: start: 20200131, end: 20200131
  19. NOVOSEVEN [Concomitant]
     Active Substance: COAGULATION FACTOR VIIA RECOMBINANT HUMAN
     Dosage: 1 DOSAGE FORM, BID
     Route: 041
     Dates: start: 20200201, end: 20200201
  20. NOVOSEVEN [Concomitant]
     Active Substance: COAGULATION FACTOR VIIA RECOMBINANT HUMAN
     Dosage: 1 DOSAGE FORM, BID
     Route: 041
     Dates: start: 20200202, end: 20200204
  21. NOVOSEVEN [Concomitant]
     Active Substance: COAGULATION FACTOR VIIA RECOMBINANT HUMAN
     Dosage: 1 DOSAGE FORM, BID
     Route: 041
     Dates: start: 20200206, end: 20200207
  22. NOVOSEVEN [Concomitant]
     Active Substance: COAGULATION FACTOR VIIA RECOMBINANT HUMAN
     Dosage: 1 DOSAGE FORM, QD
     Route: 041
     Dates: start: 20200208, end: 20200208
  23. NOVOSEVEN [Concomitant]
     Active Substance: COAGULATION FACTOR VIIA RECOMBINANT HUMAN
     Dosage: 1 DOSAGE FORM, BID
     Route: 041
     Dates: start: 20200209, end: 20200209
  24. NOVOSEVEN [Concomitant]
     Active Substance: COAGULATION FACTOR VIIA RECOMBINANT HUMAN
     Dosage: 1 DOSAGE FORM, QD
     Route: 041
     Dates: start: 20200210, end: 20200211

REACTIONS (1)
  - Haematuria [Recovering/Resolving]

NARRATIVE: CASE EVENT DATE: 20200105
